FAERS Safety Report 12426193 (Version 1)
Quarter: 2016Q2

REPORT INFORMATION
  Report Type: Report from Study
  Country: CA (occurrence: CA)
  Receive Date: 20160601
  Receipt Date: 20160601
  Transmission Date: 20160815
  Serious: Yes (Death, Hospitalization, Other)
  Sender: FDA-Public Use
  Company Number: CA-JNJFOC-20160409722

PATIENT
  Age: 61 Year
  Sex: Male
  Weight: 111.13 kg

DRUGS (4)
  1. REMICADE [Suspect]
     Active Substance: INFLIXIMAB
     Indication: COLITIS ULCERATIVE
     Route: 042
     Dates: start: 20160505, end: 20160527
  2. PREDNISONE. [Concomitant]
     Active Substance: PREDNISONE
     Route: 048
  3. REMICADE [Suspect]
     Active Substance: INFLIXIMAB
     Indication: COLITIS ULCERATIVE
     Route: 042
     Dates: start: 20160324
  4. REMICADE [Suspect]
     Active Substance: INFLIXIMAB
     Indication: COLITIS ULCERATIVE
     Dosage: SECOND DOSE WEEK 2
     Route: 042
     Dates: start: 20160410

REACTIONS (11)
  - Colitis ulcerative [Unknown]
  - Decreased appetite [Unknown]
  - Surgery [Fatal]
  - Post procedural complication [Fatal]
  - Asthenia [Unknown]
  - Clostridium difficile infection [Not Recovered/Not Resolved]
  - Weight decreased [Unknown]
  - Oedema peripheral [Unknown]
  - General physical health deterioration [Unknown]
  - Colitis ulcerative [Unknown]
  - Renal failure [Unknown]

NARRATIVE: CASE EVENT DATE: 2016
